FAERS Safety Report 5230478-5 (Version None)
Quarter: 2007Q1

REPORT INFORMATION
  Report Type: 
  Country: None (occurrence: None)
  Receive Date: 20070202
  Receipt Date: 20070119
  Transmission Date: 20070707
  Serious: Yes (Hospitalization)
  Sender: FDA-Public Use
  Company Number: FABR-11832

PATIENT
  Age: 27 Year
  Sex: Male
  Weight: 70 kg

DRUGS (1)
  1. FABRAZYME [Suspect]
     Indication: FABRY'S DISEASE
     Dosage: 70 MG Q2WKS IV
     Route: 042
     Dates: start: 20030801

REACTIONS (7)
  - AURICULAR SWELLING [None]
  - EYELID OEDEMA [None]
  - FLUSHING [None]
  - LIP SWELLING [None]
  - NAUSEA [None]
  - TENSION HEADACHE [None]
  - URTICARIA GENERALISED [None]
